FAERS Safety Report 9518497 (Version 1)
Quarter: 2013Q1

REPORT INFORMATION
  Report Type: Spontaneous
  Country: US (occurrence: None)
  Receive Date: 20130305
  Receipt Date: 20130305
  Transmission Date: 20140127
  Serious: Yes (Other)
  Sender: FDA-Public Use
  Company Number: 163-21880-11122021

PATIENT
  Age: 61 Year
  Sex: Female

DRUGS (6)
  1. REVLIMID (LENALIDOMIDE) [Suspect]
     Indication: PLASMA CELL MYELOMA
     Dosage: 15 MG, DAILY X 21 DAYS, PO
     Route: 048
     Dates: start: 20111101, end: 20111213
  2. VALACYCLOVIR(VALACICLOVIR) [Concomitant]
  3. LEVOTHROXINE(LEVOTHYROXINE) [Concomitant]
  4. AMLODIPINE(AMLODIPINE) [Concomitant]
  5. SERTRALINE(SERTRALINE) [Concomitant]
  6. LORTAB(VICODIN) [Concomitant]

REACTIONS (4)
  - Dehydration [None]
  - Dizziness [None]
  - Syncope [None]
  - Hypoaesthesia oral [None]
